FAERS Safety Report 7409942-6 (Version None)
Quarter: 2011Q2

REPORT INFORMATION
  Report Type: 
  Country: None (occurrence: None)
  Receive Date: 20110412
  Receipt Date: 20110401
  Transmission Date: 20111010
  Serious: Yes (Hospitalization)
  Sender: FDA-Public Use
  Company Number: PHHY2011FR27081

PATIENT
  Sex: Female

DRUGS (20)
  1. AVLOCARDYL [Suspect]
     Dosage: 40 MG, DAILY
     Dates: start: 20101119
  2. FORLAX [Concomitant]
     Dosage: UNK
  3. IRBESARTAN [Concomitant]
     Dosage: 150 MG, DAILY
     Dates: start: 20101120
  4. DIAMICRON [Concomitant]
     Dosage: 1 DF, DAILY
  5. AVLOCARDYL [Suspect]
     Indication: HYPERTENSION
     Dosage: 160 MG, DAILY
  6. COZAAR [Concomitant]
     Dosage: UNK
  7. AZOPT [Concomitant]
     Dosage: ONE DROP 2 TIMES DAILY IN THE TWO EYES
  8. DI-ANTALVIC [Concomitant]
     Dosage: 2 CAPSULES MORNING, NOON AND EVENING
  9. AVLOCARDYL [Suspect]
     Dosage: 20 MG, DAILY
     Dates: start: 20101208, end: 20101215
  10. CALTRATE + D [Concomitant]
     Dosage: UNK
  11. ACTONEL [Concomitant]
     Dosage: UNK
  12. ESOMEPRAZOLE [Concomitant]
     Dosage: UNK
  13. ALPHAGAN [Concomitant]
     Dosage: UNK
  14. EUPANTOL [Concomitant]
     Dosage: 1 DF, QD
  15. EQUANIL [Concomitant]
     Dosage: ONE TABLET MORNING, NOON AND EVENING
  16. SPECIAFOLDINE [Concomitant]
     Dosage: ONE TABLET MORNING AND EVENING
  17. AVLOCARDYL [Suspect]
     Dosage: 80 MG, DAILY
  18. COSOPT [Suspect]
     Indication: GLAUCOMA
     Dosage: 2 DRP, QD
     Dates: end: 20101013
  19. EXELON [Suspect]
     Indication: DEMENTIA ALZHEIMER'S TYPE
     Dosage: 9.5 MG, ONE PATCH DAILY
     Route: 062
     Dates: start: 20090106
  20. GLUCOVANCE [Concomitant]
     Dosage: UNK

REACTIONS (9)
  - HYPERGLYCAEMIA [None]
  - ACTIVITIES OF DAILY LIVING IMPAIRED [None]
  - BRADYCARDIA [None]
  - COGNITIVE DISORDER [None]
  - HYPOGLYCAEMIA [None]
  - FEMORAL NECK FRACTURE [None]
  - WALKING AID USER [None]
  - PAIN [None]
  - CONFUSIONAL STATE [None]
